FAERS Safety Report 7126351-8 (Version None)
Quarter: 2010Q4

REPORT INFORMATION
  Report Type: 
  Country: None (occurrence: None)
  Receive Date: 20101129
  Receipt Date: 20101122
  Transmission Date: 20110411
  Serious: Yes (Hospitalization)
  Sender: FDA-Public Use
  Company Number: US-US-EMD SERONO, INC.-7027539

PATIENT
  Sex: Female

DRUGS (5)
  1. REBIF [Suspect]
     Indication: MULTIPLE SCLEROSIS
     Route: 058
     Dates: start: 20060705, end: 20101110
  2. REBIF [Suspect]
     Route: 058
     Dates: start: 20101122
  3. PREDNISONE [Suspect]
  4. ATENOLOL [Concomitant]
     Indication: HEART RATE IRREGULAR
     Dates: start: 19970101
  5. ATENOLOL [Concomitant]
     Indication: PALPITATIONS

REACTIONS (3)
  - APPENDICITIS PERFORATED [None]
  - INFLUENZA LIKE ILLNESS [None]
  - VIRAL INFECTION [None]
